FAERS Safety Report 6644727-X (Version None)
Quarter: 2010Q1

REPORT INFORMATION
  Report Type: 
  Country: None (occurrence: None)
  Receive Date: 20100322
  Receipt Date: 20100310
  Transmission Date: 20100710
  Serious: Yes (Other)
  Sender: FDA-Public Use
  Company Number: US-PFIZER INC-2010031880

PATIENT
  Sex: Female
  Weight: 53.5 kg

DRUGS (2)
  1. AROMASIN [Suspect]
     Indication: BREAST CANCER
     Dosage: 25 MG, 1X/DAY
     Route: 048
     Dates: start: 20091124, end: 20100305
  2. AROMASIN [Suspect]
     Dosage: 25 MG, 1X/DAY
     Route: 048
     Dates: start: 20100309, end: 20100310

REACTIONS (8)
  - CHEST PAIN [None]
  - DECREASED APPETITE [None]
  - HYPERSENSITIVITY [None]
  - INSOMNIA [None]
  - MUSCULOSKELETAL CHEST PAIN [None]
  - PRURITUS GENERALISED [None]
  - TUMOUR PAIN [None]
  - WEIGHT DECREASED [None]
